FAERS Safety Report 5151976-9 (Version None)
Quarter: 2006Q4

REPORT INFORMATION
  Report Type: 
  Country: None (occurrence: None)
  Receive Date: 20061109
  Receipt Date: 20061027
  Transmission Date: 20070319
  Serious: Yes (Death, Hospitalization)
  Sender: FDA-Public Use
  Company Number: 2006011233

PATIENT
  Age: 57 Year
  Sex: Male
  Weight: 56 kg

DRUGS (7)
  1. SUTENT [Suspect]
     Indication: METASTATIC RENAL CELL CARCINOMA
     Dosage: 50  MG (50 MG, 1 IN 1 D), ORAL
     Route: 048
     Dates: start: 20051222, end: 20060119
  2. TRAMOL         (TRAMADOL HYDROCHLORIDE) [Concomitant]
  3. NOVALGIN           (METAMIZOLE SODIUM) [Concomitant]
  4. LASIX [Concomitant]
  5. PANTOPRAZOLE SODIUM [Concomitant]
  6. ALIZAPRIDE              (ALIZAPRIDE) [Concomitant]
  7. PROMETHAZINE [Concomitant]

REACTIONS (4)
  - APHASIA [None]
  - CEREBRAL HAEMORRHAGE [None]
  - DYSPNOEA [None]
  - METASTASES TO CENTRAL NERVOUS SYSTEM [None]
